APPROVED DRUG PRODUCT: NORTRIPTYLINE HYDROCHLORIDE
Active Ingredient: NORTRIPTYLINE HYDROCHLORIDE
Strength: EQ 10MG BASE/5ML
Dosage Form/Route: SOLUTION;ORAL
Application: A075606 | Product #001 | TE Code: AA
Applicant: PHARMACEUTICAL ASSOCIATES INC
Approved: Aug 23, 2000 | RLD: No | RS: Yes | Type: RX